FAERS Safety Report 5709306-7 (Version None)
Quarter: 2008Q2

REPORT INFORMATION
  Report Type: 
  Country: None (occurrence: None)
  Receive Date: 20080418
  Receipt Date: 20080409
  Transmission Date: 20081010
  Serious: Yes (Other)
  Sender: FDA-Public Use
  Company Number: ES-ELI_LILLY_AND_COMPANY-ES200804003357

PATIENT
  Age: 34 Year
  Sex: Male

DRUGS (2)
  1. TADALAFIL [Suspect]
     Indication: ERECTILE DYSFUNCTION
     Dosage: UNK, AS NEEDED
     Route: 048
  2. ZYPREXA [Concomitant]

REACTIONS (2)
  - MACULOPATHY [None]
  - SPERM COUNT DECREASED [None]
